FAERS Safety Report 19772313 (Version 2)
Quarter: 2021Q4

REPORT INFORMATION
  Report Type: Spontaneous
  Country: US (occurrence: US)
  Receive Date: 20210901
  Receipt Date: 20211012
  Transmission Date: 20220304
  Serious: No
  Sender: FDA-Public Use
  Company Number: 2021A662663

PATIENT
  Age: 25483 Day
  Sex: Male
  Weight: 92.1 kg

DRUGS (3)
  1. BYDUREON BCISE [Suspect]
     Active Substance: EXENATIDE
     Indication: Glycosylated haemoglobin increased
     Dosage: 2MG/ML ONCE A WEEK
     Route: 065
     Dates: start: 20210524, end: 20210719
  2. BYDUREON BCISE [Suspect]
     Active Substance: EXENATIDE
     Indication: Blood glucose increased
     Dosage: 2MG/ML ONCE A WEEK
     Route: 065
     Dates: start: 20210524, end: 20210719
  3. BYDUREON BCISE [Suspect]
     Active Substance: EXENATIDE
     Indication: Type 2 diabetes mellitus
     Dosage: 2MG/ML ONCE A WEEK
     Route: 065
     Dates: start: 20210524, end: 20210719

REACTIONS (5)
  - Impaired gastric emptying [Not Recovered/Not Resolved]
  - Injection site cyst [Not Recovered/Not Resolved]
  - Nausea [Not Recovered/Not Resolved]
  - Abdominal distension [Unknown]
  - Abdominal discomfort [Unknown]

NARRATIVE: CASE EVENT DATE: 20210503
